FAERS Safety Report 17879053 (Version 9)
Quarter: 2022Q3

REPORT INFORMATION
  Report Type: Spontaneous
  Country: BR (occurrence: BR)
  Receive Date: 20200610
  Receipt Date: 20220927
  Transmission Date: 20221027
  Serious: Yes (Other)
  Sender: FDA-Public Use
  Company Number: BR-GLAXOSMITHKLINE-BR2020AMR060672

PATIENT

DRUGS (3)
  1. NUCALA [Suspect]
     Active Substance: MEPOLIZUMAB
     Indication: Asthma
     Dosage: 100 MG/ML
     Dates: start: 20191029
  2. NUCALA [Suspect]
     Active Substance: MEPOLIZUMAB
     Indication: Asthma
     Dosage: 100 MG
     Dates: start: 20191028
  3. NUCALA [Suspect]
     Active Substance: MEPOLIZUMAB
     Indication: Asthma
     Dosage: 100 MG, Z (EVERY 30 DAYS)
     Dates: start: 20191028

REACTIONS (15)
  - Asthmatic crisis [Not Recovered/Not Resolved]
  - Dyspnoea [Not Recovered/Not Resolved]
  - Nervousness [Unknown]
  - Asthma [Unknown]
  - Dyspnoea exertional [Unknown]
  - Weight increased [Unknown]
  - Abdominal discomfort [Unknown]
  - Lung disorder [Unknown]
  - Therapy interrupted [Unknown]
  - Drug ineffective [Unknown]
  - Social problem [Unknown]
  - Circumstance or information capable of leading to medication error [Unknown]
  - Product preparation error [Unknown]
  - Inappropriate schedule of product administration [Unknown]
  - Product complaint [Unknown]

NARRATIVE: CASE EVENT DATE: 20200529
